FAERS Safety Report 6017032-2 (Version None)
Quarter: 2008Q4

REPORT INFORMATION
  Report Type: 
  Country: None (occurrence: None)
  Receive Date: 20081223
  Receipt Date: 20081218
  Transmission Date: 20090506
  Serious: Yes (Death)
  Sender: FDA-Public Use
  Company Number: BR-BAYER-200823666LA

PATIENT
  Age: 57 Year
  Sex: Female

DRUGS (4)
  1. BETAFERON [Suspect]
     Indication: MULTIPLE SCLEROSIS
     Route: 058
     Dates: start: 20061201, end: 20081201
  2. PURAN [Concomitant]
     Indication: HYPOTHYROIDISM
     Dosage: TOTAL DAILY DOSE: 75 MG
     Route: 048
     Dates: start: 19940101, end: 20081201
  3. BACLOFEN [Concomitant]
     Indication: MUSCLE SPASMS
     Dosage: TOTAL DAILY DOSE: 40 MG
     Route: 065
     Dates: start: 20060101, end: 20081201
  4. BUPROPION [Concomitant]
     Indication: DEPRESSION
     Dosage: TOTAL DAILY DOSE: 300 MG
     Route: 048
     Dates: start: 20060101, end: 20081201

REACTIONS (1)
  - CARDIAC DISORDER [None]
